FAERS Safety Report 5441446-2 (Version None)
Quarter: 2007Q3

REPORT INFORMATION
  Report Type: 
  Country: None (occurrence: None)
  Receive Date: 20070904
  Receipt Date: 20070823
  Transmission Date: 20080115
  Serious: Yes (Hospitalization, Other)
  Sender: FDA-Public Use
  Company Number: HR-JNJFOC-20070800934

PATIENT
  Age: 85 Year
  Sex: Female

DRUGS (7)
  1. DURAGESIC-100 [Suspect]
     Indication: DRUG USE FOR UNKNOWN INDICATION
     Route: 062
  2. DUROGESIC [Suspect]
     Route: 062
  3. DUROGESIC [Suspect]
     Route: 062
  4. DUROGESIC [Suspect]
     Indication: DRUG USE FOR UNKNOWN INDICATION
     Route: 062
  5. CAPECITABINE [Concomitant]
     Indication: METASTASES TO LIVER
     Route: 065
  6. CAPECITABINE [Concomitant]
     Indication: COLON CANCER
     Route: 065
  7. REGLAN [Concomitant]
     Route: 065

REACTIONS (5)
  - ASTHENIA [None]
  - ATRIOVENTRICULAR BLOCK COMPLETE [None]
  - MELAENA [None]
  - SLUGGISHNESS [None]
  - VOMITING [None]
